FAERS Safety Report 20955842 (Version 1)
Quarter: 2022Q2

REPORT INFORMATION
  Report Type: Spontaneous
  Country: US (occurrence: None)
  Receive Date: 20220614
  Receipt Date: 20220614
  Transmission Date: 20220720
  Serious: Yes (Death)
  Sender: FDA-Public Use
  Company Number: None

PATIENT
  Age: 54 Year
  Sex: Male
  Weight: 90.4 kg

DRUGS (5)
  1. CYCLOPHOSPHAMIDE [Suspect]
     Active Substance: CYCLOPHOSPHAMIDE
     Dates: end: 20190827
  2. CYTARABINE [Suspect]
     Active Substance: CYTARABINE
     Dates: end: 20190906
  3. MERCAPTOPURINE [Suspect]
     Active Substance: MERCAPTOPURINE
     Dates: end: 20190909
  4. METHOTREXATE [Suspect]
     Active Substance: METHOTREXATE
     Dates: end: 20190910
  5. ONCASPAR [Suspect]
     Active Substance: PEGASPARGASE
     Dates: end: 20190910

REACTIONS (7)
  - Syncope [None]
  - Body temperature increased [None]
  - Neutropenia [None]
  - Unresponsive to stimuli [None]
  - Haemorrhage [None]
  - Vomiting [None]
  - Pulseless electrical activity [None]

NARRATIVE: CASE EVENT DATE: 20190914
